FAERS Safety Report 17281647 (Version 1)
Quarter: 2020Q1

REPORT INFORMATION
  Report Type: Spontaneous
  Country: US (occurrence: US)
  Receive Date: 20191227
  Receipt Date: 20191227
  Transmission Date: 20200409
  Serious: No
  Sender: FDA-Public Use
  Company Number: None

PATIENT
  Age: 68 Year

DRUGS (1)
  1. TRENTINON [Suspect]
     Active Substance: TRETINOIN

REACTIONS (2)
  - Headache [None]
  - Chapped lips [None]
